FAERS Safety Report 25028930 (Version 1)
Quarter: 2025Q1

REPORT INFORMATION
  Report Type: Report from Study
  Country: DE (occurrence: DE)
  Receive Date: 20250302
  Receipt Date: 20250302
  Transmission Date: 20250409
  Serious: Yes (Hospitalization)
  Sender: ABBVIE
  Company Number: DE-ABBVIE-6154467

PATIENT
  Age: 71 Year
  Sex: Female

DRUGS (11)
  1. SKYRIZI [Suspect]
     Active Substance: RISANKIZUMAB-RZAA
     Indication: Crohn^s disease
     Route: 041
     Dates: start: 20241202
  2. OMEPRAZOLE [Concomitant]
     Active Substance: OMEPRAZOLE
     Indication: Gastrointestinal disorder prophylaxis
     Route: 048
     Dates: start: 1984
  3. LEVOTHYROXINE SODIUM [Concomitant]
     Active Substance: LEVOTHYROXINE SODIUM
     Indication: Thyroid disorder
     Route: 048
     Dates: start: 2015
  4. VITAMIN D [Concomitant]
     Active Substance: VITAMIN D NOS
     Indication: Vitamin D deficiency
     Dosage: VITAMIN D COLECALCIFEROL ARISTO
     Route: 048
     Dates: start: 2017
  5. FENTANYL [Concomitant]
     Active Substance: FENTANYL
     Indication: Osteoporosis
     Route: 062
     Dates: start: 202406
  6. SULFASALAZINE [Concomitant]
     Active Substance: SULFASALAZINE
     Indication: Crohn^s disease
     Route: 048
     Dates: start: 202409
  7. AMITRIPTYLINE [Concomitant]
     Active Substance: AMITRIPTYLINE
     Indication: Product used for unknown indication
     Dates: start: 2022
  8. BECLOMETHASONE DIPROPIONATE\FORMOTEROL FUMARATE\GLYCOPYRROLATE [Concomitant]
     Active Substance: BECLOMETHASONE DIPROPIONATE\FORMOTEROL FUMARATE\GLYCOPYRROLATE
     Indication: Chronic obstructive pulmonary disease
     Dosage: TRIMBOW SPRAY 87/5/9?MICROGRAMS
     Route: 055
     Dates: start: 2021
  9. PRAMIPEXOLE [Concomitant]
     Active Substance: PRAMIPEXOLE
     Indication: Restless legs syndrome
     Dosage: PRAMIPEXOLE 0.26 MG
     Route: 048
     Dates: start: 2010
  10. LEVODOPA [Concomitant]
     Active Substance: LEVODOPA
     Indication: Restless legs syndrome
     Dosage: LEVODOPA 100/ 25 MG
     Route: 048
     Dates: start: 2010
  11. QUININE SULFATE [Concomitant]
     Active Substance: QUININE SULFATE
     Indication: Restless legs syndrome
     Route: 048
     Dates: start: 2015

REACTIONS (1)
  - Breast inflammation [Recovering/Resolving]

NARRATIVE: CASE EVENT DATE: 20250207
